FAERS Safety Report 7187015-8 (Version None)
Quarter: 2010Q4

REPORT INFORMATION
  Report Type: 
  Country: None (occurrence: None)
  Receive Date: 20101222
  Receipt Date: 20100723
  Transmission Date: 20110411
  Serious: No
  Sender: FDA-Public Use
  Company Number: US-AMGEN-TCS420563

PATIENT

DRUGS (1)
  1. ENBREL [Suspect]
     Indication: RHEUMATOID ARTHRITIS
     Dosage: 50 MG, QWK
     Route: 058
     Dates: start: 20080414

REACTIONS (11)
  - ABDOMINAL PAIN [None]
  - ARTHROPOD BITE [None]
  - BLOOD URINE PRESENT [None]
  - DIARRHOEA [None]
  - EYE DISCHARGE [None]
  - HEADACHE [None]
  - NAUSEA [None]
  - PARANASAL SINUS HYPERSECRETION [None]
  - PYREXIA [None]
  - RASH [None]
  - VOMITING [None]
